FAERS Safety Report 7100285-7 (Version None)
Quarter: 2010Q4

REPORT INFORMATION
  Report Type: 
  Country: None (occurrence: None)
  Receive Date: 20101112
  Receipt Date: 20101108
  Transmission Date: 20110411
  Serious: Yes (Death, Hospitalization)
  Sender: FDA-Public Use
  Company Number: PHHY2010BE74499

PATIENT
  Sex: Male

DRUGS (8)
  1. ALISKIREN ALI+TAB [Suspect]
     Indication: HYPERTENSION
  2. LIPITOR [Concomitant]
  3. ALDACTONE [Concomitant]
  4. EMCONCOR [Concomitant]
  5. ADALAT [Concomitant]
  6. MOXONIDINE [Concomitant]
  7. GLURENORM [Concomitant]
  8. INSULIN ASPART [Concomitant]

REACTIONS (3)
  - CHEST PAIN [None]
  - CORONARY ARTERY BYPASS [None]
  - MYOCARDIAL INFARCTION [None]
